FAERS Safety Report 6700026-9 (Version None)
Quarter: 2010Q2

REPORT INFORMATION
  Report Type: 
  Country: None (occurrence: None)
  Receive Date: 20100428
  Receipt Date: 20100419
  Transmission Date: 20101027
  Serious: Yes (Hospitalization)
  Sender: FDA-Public Use
  Company Number: PHEH2010US03002

PATIENT
  Sex: Male

DRUGS (3)
  1. GLEEVEC [Suspect]
     Indication: CHRONIC MYELOID LEUKAEMIA
     Dosage: 400 MG, QD
     Route: 048
     Dates: start: 20100201, end: 20100324
  2. GLEEVEC [Suspect]
     Dosage: 400 MG, QD
     Route: 048
     Dates: start: 20100331
  3. NOVOLIN [Concomitant]

REACTIONS (8)
  - ABDOMINAL DISTENSION [None]
  - ABDOMINAL WOUND DEHISCENCE [None]
  - CHROMATURIA [None]
  - METABOLIC ACIDOSIS [None]
  - OEDEMA [None]
  - RENAL FAILURE [None]
  - TRANSAMINASES INCREASED [None]
  - URINE OUTPUT DECREASED [None]
